FAERS Safety Report 8575174-1 (Version None)
Quarter: 2012Q3

REPORT INFORMATION
  Report Type: 
  Country: None (occurrence: None)
  Receive Date: 20120807
  Receipt Date: 20120730
  Transmission Date: 20120928
  Serious: Yes (Death)
  Sender: FDA-Public Use
  Company Number: JP-JNJFOC-20120802138

PATIENT
  Age: 76 Year
  Sex: Female

DRUGS (5)
  1. TRASTUZUMAB [Suspect]
     Indication: BREAST CANCER
     Dosage: LOADING DOSE-8 MG/KG, MAINTENANCE DOSE-6 MG/KG EVERY  3 WEEKS.
     Route: 065
  2. CYCLOPHOSPHAMIDE [Suspect]
     Indication: BREAST CANCER
     Dosage: 500 MG/M2 FOR FAC REGIMEN AND 600 MG/M2 FOR AC REGIMEN
     Route: 065
  3. ANASTROZOLE [Suspect]
     Indication: HORMONE THERAPY
     Route: 065
  4. DOXORUBICIN HYDROCHLORIDE [Suspect]
     Indication: BREAST CANCER
     Dosage: 40-60 MG/M2 FOR FAC AND 60 MG/M2 FOR AC
     Route: 042
  5. FLUOROURACIL [Suspect]
     Indication: BREAST CANCER
     Route: 065

REACTIONS (1)
  - INTERSTITIAL LUNG DISEASE [None]
